FAERS Safety Report 17308123 (Version 1)
Quarter: 2020Q1

REPORT INFORMATION
  Report Type: Spontaneous
  Country: US (occurrence: US)
  Receive Date: 20200122
  Receipt Date: 20200122
  Transmission Date: 20200409
  Serious: Yes (Disabling)
  Sender: FDA-Public Use
  Company Number: None

PATIENT
  Age: 34 Year
  Weight: 58.5 kg

DRUGS (3)
  1. WOMEN^S MULTIVITAMIN (GARDEN OF LIFE RAW PRENATAL MULTIVITAMIN) [Concomitant]
  2. LEVAQUIN [Suspect]
     Active Substance: LEVOFLOXACIN
     Indication: KLEBSIELLA INFECTION
     Route: 048
  3. LEVAQUIN [Suspect]
     Active Substance: LEVOFLOXACIN
     Indication: STAPHYLOCOCCAL INFECTION
     Route: 048

REACTIONS (6)
  - Blood glucose decreased [None]
  - Heart rate increased [None]
  - Dizziness [None]
  - Nervousness [None]
  - Presyncope [None]
  - Anxiety [None]

NARRATIVE: CASE EVENT DATE: 20180615
